FAERS Safety Report 8560354-1 (Version None)
Quarter: 2012Q3

REPORT INFORMATION
  Report Type: 
  Country: None (occurrence: None)
  Receive Date: 20120802
  Receipt Date: 20120723
  Transmission Date: 20120928
  Serious: Yes (Hospitalization)
  Sender: FDA-Public Use
  Company Number: DE-ROCHE-1092426

PATIENT
  Age: 78 Year
  Sex: Female
  Weight: 84 kg

DRUGS (9)
  1. ARCOXIA [Concomitant]
  2. FUROSEMIDE [Concomitant]
  3. AMLODIPINE [Concomitant]
  4. ACTRAPHANE [Concomitant]
     Indication: DIABETES MELLITUS
  5. ACTEMRA [Suspect]
     Indication: RHEUMATOID ARTHRITIS
     Dates: start: 20101001, end: 20110501
  6. MOLSIDOMIN [Concomitant]
  7. RAMIPRIL [Concomitant]
  8. SIMVASTATIN [Concomitant]
  9. SPASMEX (GERMANY) [Concomitant]

REACTIONS (3)
  - SYNCOPE [None]
  - ERYSIPELAS [None]
  - HYPOGLYCAEMIA [None]
